FAERS Safety Report 5935177-X (Version None)
Quarter: 2008Q4

REPORT INFORMATION
  Report Type: 
  Country: None (occurrence: None)
  Receive Date: 20081028
  Receipt Date: 20081014
  Transmission Date: 20090506
  Serious: Yes (Hospitalization, Other)
  Sender: FDA-Public Use
  Company Number: 2008US002445

PATIENT
  Age: 52 Year
  Sex: Male
  Weight: 97 kg

DRUGS (10)
  1. PROGRAF [Suspect]
     Indication: RENAL TRANSPLANT
     Dosage: 4 MG, BID, ORAL
     Route: 048
     Dates: start: 20070714
  2. CELLCEPT (MYCOPHENOLATE MOFETIL) [Concomitant]
  3. PREDNISOLONE ACETATE [Concomitant]
  4. ALLOPURINOL [Concomitant]
  5. METOPROLOL TARTRATE [Concomitant]
  6. LEXAPRO [Concomitant]
  7. PREVACID [Concomitant]
  8. VALCYTE [Concomitant]
  9. DOXAZOSIN (DOXAZOSIN) [Concomitant]
  10. BACTRIM DS [Concomitant]

REACTIONS (5)
  - COMPLICATIONS OF TRANSPLANTED KIDNEY [None]
  - HYDRONEPHROSIS [None]
  - HYDROURETER [None]
  - RENAL FAILURE ACUTE [None]
  - URETHRAL OBSTRUCTION [None]
